FAERS Safety Report 9116233 (Version 2)
Quarter: 2013Q2

REPORT INFORMATION
  Report Type: Spontaneous
  Country: US (occurrence: US)
  Receive Date: 20130223
  Receipt Date: 20130529
  Transmission Date: 20140414
  Serious: No
  Sender: FDA-Public Use
  Company Number: US-009507513-1302USA010814

PATIENT
  Sex: Female

DRUGS (1)
  1. CHLOR-TRIMETON ALLERGY 4 HOUR TABLETS [Suspect]
     Indication: HYPERSENSITIVITY
     Dosage: UNK, UNKNOWN
     Route: 048

REACTIONS (5)
  - Swelling face [Unknown]
  - Nasal oedema [Unknown]
  - Condition aggravated [Unknown]
  - Feeling abnormal [Unknown]
  - Drug ineffective [Unknown]
